FAERS Safety Report 8009103-6 (Version None)
Quarter: 2011Q4

REPORT INFORMATION
  Report Type: 
  Country: None (occurrence: None)
  Receive Date: 20111221
  Receipt Date: 20111214
  Transmission Date: 20120403
  Serious: Yes (Disabling)
  Sender: FDA-Public Use
  Company Number: AUR-APL-2011-06170

PATIENT
  Age: 64 Year
  Sex: Male

DRUGS (4)
  1. NEXIUM [Concomitant]
  2. ASPIRIN [Concomitant]
  3. SIMVASTATIN [Suspect]
     Indication: PROPHYLAXIS
     Dosage: 40 MG (40 MG, 1 IN 1 D),ORAL
     Route: 048
     Dates: start: 20110101, end: 20110101
  4. FLUTICASONE PROPIONATE/SALMETEROL [Concomitant]

REACTIONS (5)
  - MUSCULOSKELETAL STIFFNESS [None]
  - MUSCLE SPASMS [None]
  - ANORECTAL DISCOMFORT [None]
  - MYALGIA [None]
  - MUSCLE ATROPHY [None]
